FAERS Safety Report 4667171-3 (Version None)
Quarter: 2005Q2

REPORT INFORMATION
  Report Type: 
  Country: None (occurrence: None)
  Receive Date: 20050520
  Receipt Date: 20040630
  Transmission Date: 20051028
  Serious: Yes (Other)
  Sender: FDA-Public Use
  Company Number: PHEH2004US07125

PATIENT
  Age: 57 Year
  Sex: Male

DRUGS (4)
  1. ZOMETA [Suspect]
     Indication: MULTIPLE MYELOMA
     Dosage: 4 MG EVERY 4 WEEKS
     Route: 042
     Dates: start: 20011101, end: 20040501
  2. EPOGEN [Concomitant]
     Indication: ANAEMIA
     Dosage: 40,000 UNIT EVERY WEEK
     Route: 058
     Dates: start: 19990101
  3. DILAUDID [Concomitant]
     Indication: PAIN
     Dosage: 2 MG, PRN
     Dates: start: 19990101
  4. HUMALOG [Concomitant]
     Indication: DIABETES MELLITUS
     Dosage: DOSGAE VARIES WITH NEED

REACTIONS (10)
  - BONE DISORDER [None]
  - BONE INFECTION [None]
  - HYPOAESTHESIA [None]
  - JAW DISORDER [None]
  - OSTEOMYELITIS [None]
  - OSTEONECROSIS [None]
  - PAIN [None]
  - SWELLING [None]
  - TOOTH EXTRACTION [None]
  - TOOTH INFECTION [None]
